FAERS Safety Report 8989382 (Version 1)
Quarter: 2012Q4

REPORT INFORMATION
  Report Type: 
  Country: DE (occurrence: DE)
  Receive Date: 20121228
  Receipt Date: 20121228
  Transmission Date: 20130627
  Serious: Yes (Other)
  Sender: FDA-Public Use
  Company Number: DE-BAYER-2012-134204

PATIENT
  Age: 40 Year
  Sex: Male

DRUGS (1)
  1. LEVITRA (FDT/ODT) [Suspect]
     Indication: ERECTILE DYSFUNCTION
     Dosage: 10 mg, ONCE
     Route: 048
     Dates: start: 20121207

REACTIONS (3)
  - Hypersensitivity [Recovered/Resolved]
  - Circulatory collapse [Recovered/Resolved]
  - Flushing [Recovered/Resolved]
